FAERS Safety Report 10245915 (Version 1)
Quarter: 2014Q2

REPORT INFORMATION
  Report Type: Spontaneous
  Country: US (occurrence: US)
  Receive Date: 20140619
  Receipt Date: 20140619
  Transmission Date: 20141212
  Serious: No
  Sender: FDA-Public Use
  Company Number: US-009507513-1406USA003190

PATIENT
  Sex: Female

DRUGS (1)
  1. NEXPLANON [Suspect]
     Indication: CONTRACEPTION
     Dosage: 68 MG, ONCE EVERY THREE YEARS
     Route: 059
     Dates: end: 20140603

REACTIONS (4)
  - Fibrosis [Unknown]
  - Device difficult to use [Unknown]
  - Device breakage [Unknown]
  - Product quality issue [Unknown]
